FAERS Safety Report 6242445-3 (Version None)
Quarter: 2009Q2

REPORT INFORMATION
  Report Type: 
  Country: None (occurrence: None)
  Receive Date: 20090624
  Receipt Date: 20090618
  Transmission Date: 20091009
  Serious: Yes (Other)
  Sender: FDA-Public Use
  Company Number: FR-ASTRAZENECA-2009CG00629

PATIENT
  Age: 476 Day
  Sex: Female
  Weight: 10 kg

DRUGS (3)
  1. EMLA [Suspect]
     Indication: LOCAL ANAESTHESIA
     Route: 061
     Dates: start: 20090323, end: 20090323
  2. INFANRIX [Concomitant]
     Indication: IMMUNISATION
     Dates: start: 20090323, end: 20090323
  3. PREVENAR [Concomitant]
     Indication: IMMUNISATION
     Dates: start: 20090323, end: 20090323

REACTIONS (2)
  - ATAXIA [None]
  - MUSCULAR WEAKNESS [None]
